FAERS Safety Report 7341799-4 (Version None)
Quarter: 2011Q1

REPORT INFORMATION
  Report Type: 
  Country: None (occurrence: None)
  Receive Date: 20110309
  Receipt Date: 20110304
  Transmission Date: 20110831
  Serious: Yes (Other)
  Sender: FDA-Public Use
  Company Number: JP-PFIZER INC-2011024125

PATIENT
  Age: 54 Year
  Sex: Male

DRUGS (12)
  1. MEDICON [Concomitant]
     Indication: UPPER RESPIRATORY TRACT INFLAMMATION
     Dosage: 0.99 G, (0.33 G, 3 IN 1 D)
     Route: 048
     Dates: start: 20110112, end: 20110114
  2. SP TROCHE [Concomitant]
     Indication: UPPER RESPIRATORY TRACT INFLAMMATION
     Dosage: 0.1429 MG (0.25 MG, 4 IN 1 WK)
     Route: 048
     Dates: start: 20110112, end: 20110114
  3. BETAXOLOL HYDROCHLORIDE [Suspect]
     Dosage: 10 MG, (1 IN 1 D)
     Route: 048
  4. BANAN [Suspect]
     Indication: UPPER RESPIRATORY TRACT INFLAMMATION
  5. METHY F [Concomitant]
     Indication: UPPER RESPIRATORY TRACT INFLAMMATION
     Route: 048
  6. CHLORPHENIRAMINE MALEATE [Concomitant]
     Indication: UPPER RESPIRATORY TRACT INFLAMMATION
     Dosage: 0.33 G, 3 IN 1 D
     Route: 048
     Dates: start: 20110112, end: 20110114
  7. MUCODYNE [Concomitant]
     Indication: UPPER RESPIRATORY TRACT INFLAMMATION
     Dosage: 2.01 G, (0.67 G, 3 IN 1 D)
     Route: 048
     Dates: start: 20110112, end: 20110114
  8. CRESTOR [Concomitant]
     Indication: HYPERLIPIDAEMIA
     Dosage: 2.5 MG, (1 IN 1 DAY)
     Route: 048
  9. BANAN [Suspect]
     Indication: NASOPHARYNGITIS
     Dosage: 100 MG, 2X/DAY
     Route: 048
     Dates: start: 20110112, end: 20110114
  10. MIYA BM [Concomitant]
     Indication: UPPER RESPIRATORY TRACT INFLAMMATION
     Dosage: 2.01 G, (0.67 G, 3 IN 1 D)
     Route: 048
     Dates: start: 20110112, end: 20110114
  11. CALONAL [Concomitant]
     Indication: UPPER RESPIRATORY TRACT INFLAMMATION
     Dosage: 300 MG, UNK
     Route: 048
     Dates: start: 20110112, end: 20110114
  12. POVIDONE-IODINE [Concomitant]
     Indication: UPPER RESPIRATORY TRACT INFLAMMATION
     Dosage: A FEW TIMES
     Route: 048
     Dates: start: 20110112, end: 20110114

REACTIONS (1)
  - LIVER DISORDER [None]
